FAERS Safety Report 18935286 (Version 3)
Quarter: 2022Q1

REPORT INFORMATION
  Report Type: Report from Study
  Country: US (occurrence: US)
  Receive Date: 20210224
  Receipt Date: 20220209
  Transmission Date: 20220423
  Serious: No
  Sender: FDA-Public Use
  Company Number: US-HRARD-202000914

PATIENT
  Sex: Female

DRUGS (6)
  1. LYSODREN [Suspect]
     Active Substance: MITOTANE
     Route: 048
     Dates: start: 20181221
  2. LYSODREN [Suspect]
     Active Substance: MITOTANE
     Dosage: AT THE TIME OF REPORTING: 07 TABLETS IN AM AND 08 TABLETS IN PM
     Route: 048
  3. LYSODREN [Suspect]
     Active Substance: MITOTANE
     Dosage: AT THE TIME OF REPORTING: 3500 IN AM AND 4500 IN PM
     Route: 048
     Dates: start: 20201119
  4. KLOR-CON [Concomitant]
     Active Substance: POTASSIUM CHLORIDE
  5. LOSARTAN [Concomitant]
     Active Substance: LOSARTAN
  6. Astovastatin [Concomitant]

REACTIONS (5)
  - Pruritus [Not Recovered/Not Resolved]
  - Fatigue [Not Recovered/Not Resolved]
  - Nausea [Not Recovered/Not Resolved]
  - Dizziness [Not Recovered/Not Resolved]
  - Diarrhoea [Not Recovered/Not Resolved]

NARRATIVE: CASE EVENT DATE: 20180101
